FAERS Safety Report 25986852 (Version 1)
Quarter: 2025Q4

REPORT INFORMATION
  Report Type: Spontaneous
  Country: US (occurrence: US)
  Receive Date: 20251102
  Receipt Date: 20251102
  Transmission Date: 20260118
  Serious: No
  Sender: CELLTRION
  Company Number: US-CELLTRION INC.-2025US003574

PATIENT

DRUGS (2)
  1. INFLIXIMAB [Suspect]
     Active Substance: INFLIXIMAB
     Indication: Crohn^s disease
     Dosage: 10 MG
     Route: 065
  2. INFLIXIMAB [Suspect]
     Active Substance: INFLIXIMAB
     Indication: Iron deficiency anaemia

REACTIONS (1)
  - Off label use [Unknown]
